FAERS Safety Report 9611312 (Version 4)
Quarter: 2013Q4

REPORT INFORMATION
  Report Type: Spontaneous
  Country: US (occurrence: US)
  Receive Date: 20131010
  Receipt Date: 20131217
  Transmission Date: 20140711
  Serious: Yes (Hospitalization)
  Sender: FDA-Public Use
  Company Number: US-BIOGENIDEC-2013BI097058

PATIENT
  Age: 47 Year
  Sex: Male

DRUGS (9)
  1. TYSABRI [Suspect]
     Indication: MULTIPLE SCLEROSIS
     Route: 042
     Dates: start: 20100224, end: 20130528
  2. GABAPENTIN [Concomitant]
     Route: 048
  3. KLONOPIN [Concomitant]
     Route: 048
  4. BACLOFEN [Concomitant]
     Route: 048
  5. OXAPROZIN [Concomitant]
     Route: 048
  6. LASIX [Concomitant]
     Route: 048
  7. TRAMADOL [Concomitant]
     Route: 048
  8. ZOCOR [Concomitant]
     Route: 048
  9. ZOSYN [Concomitant]
     Route: 042

REACTIONS (5)
  - Upper limb fracture [Recovered/Resolved]
  - Staphylococcal infection [Unknown]
  - Fall [Recovered/Resolved]
  - Abasia [Not Recovered/Not Resolved]
  - Urinary tract infection [Unknown]
